FAERS Safety Report 8702774 (Version 2)
Quarter: 2012Q4

REPORT INFORMATION
  Report Type: 
  Country: BR (occurrence: BR)
  Receive Date: 20120803
  Receipt Date: 20121211
  Transmission Date: 20130627
  Serious: Yes (Other)
  Sender: FDA-Public Use
  Company Number: BR-PFIZER INC-2012184237

PATIENT
  Age: 63 Year
  Sex: Male
  Weight: 83 kg

DRUGS (2)
  1. LYRICA [Suspect]
     Indication: PAIN
     Dosage: 75 mg, 2x/day
     Route: 048
     Dates: start: 20111027
  2. LYRICA [Suspect]
     Indication: BACK DISORDER
     Dosage: 75 mg, 1x/day
     Route: 048
     Dates: start: 201201

REACTIONS (2)
  - Lumbar hernia [Unknown]
  - Blood triglycerides increased [Unknown]
